FAERS Safety Report 7748943-5 (Version None)
Quarter: 2011Q3

REPORT INFORMATION
  Report Type: 
  Country: None (occurrence: None)
  Receive Date: 20110909
  Receipt Date: 20110829
  Transmission Date: 20111222
  Serious: Yes (Other)
  Sender: FDA-Public Use
  Company Number: 2011SP039922

PATIENT
  Age: 42 Year
  Sex: Female

DRUGS (2)
  1. REBETOL [Suspect]
     Indication: HEPATITIS C
     Dosage: 1000 MG;QD;PO
     Route: 048
     Dates: start: 20091102, end: 20101220
  2. PEGASYS [Suspect]
     Indication: HEPATITIS C
     Dosage: 180 MCG;QW;PO
     Route: 048
     Dates: start: 20091102, end: 20101220

REACTIONS (8)
  - NEUTROPENIA [None]
  - HEPATIC FIBROSIS [None]
  - HEPATITIS CHOLESTATIC [None]
  - GRANULOMATOUS LIVER DISEASE [None]
  - ANAEMIA [None]
  - LEUKOPENIA [None]
  - ASTHENIA [None]
  - SARCOIDOSIS [None]
